FAERS Safety Report 19656222 (Version 1)
Quarter: 2021Q3

REPORT INFORMATION
  Report Type: Spontaneous
  Country: US (occurrence: US)
  Receive Date: 20210803
  Receipt Date: 20210803
  Transmission Date: 20211014
  Serious: Yes (Hospitalization)
  Sender: FDA-Public Use
  Company Number: None

PATIENT
  Sex: Male
  Weight: 70 kg

DRUGS (4)
  1. G?CSF [Concomitant]
     Active Substance: GRANULOCYTE COLONY-STIMULATING FACTOR NOS
  2. IFOSFAMIDE. [Concomitant]
     Active Substance: IFOSFAMIDE
  3. CISPLATIN. [Suspect]
     Active Substance: CISPLATIN
  4. TAXOL [Concomitant]
     Active Substance: PACLITAXEL

REACTIONS (3)
  - Vomiting [None]
  - Febrile neutropenia [None]
  - Acute kidney injury [None]

NARRATIVE: CASE EVENT DATE: 20210724
